FAERS Safety Report 19059336 (Version 1)
Quarter: 2021Q1

REPORT INFORMATION
  Report Type: Report from Study
  Country: US (occurrence: US)
  Receive Date: 20210326
  Receipt Date: 20210326
  Transmission Date: 20210420
  Serious: Yes (Other)
  Sender: FDA-Public Use
  Company Number: US-EMD SERONO-7256978

PATIENT
  Age: 62 Year
  Sex: Female

DRUGS (1)
  1. REBIF [Suspect]
     Active Substance: INTERFERON BETA-1A
     Indication: MULTIPLE SCLEROSIS
     Route: 058
     Dates: start: 20061020

REACTIONS (7)
  - Eye haemorrhage [Recovered/Resolved]
  - Glaucoma [Unknown]
  - Cataract [Recovered/Resolved]
  - Chills [Not Recovered/Not Resolved]
  - Feeling cold [Not Recovered/Not Resolved]
  - Cerebrovascular accident [Recovering/Resolving]
  - Optic neuritis [Unknown]

NARRATIVE: CASE EVENT DATE: 201310
